FAERS Safety Report 9055756 (Version 3)
Quarter: 2014Q1

REPORT INFORMATION
  Report Type: Report from Study
  Country: IE (occurrence: IE)
  Receive Date: 20130206
  Receipt Date: 20140116
  Transmission Date: 20141002
  Serious: Yes (Death)
  Sender: FDA-Public Use
  Company Number: IE-ROCHE-1187262

PATIENT
  Age: 83 Year
  Sex: Female

DRUGS (2)
  1. RANIBIZUMAB [Suspect]
     Indication: AGE-RELATED MACULAR DEGENERATION
     Route: 050
     Dates: start: 20091123
  2. RANIBIZUMAB [Suspect]
     Route: 050
     Dates: start: 20120612, end: 20120615

REACTIONS (1)
  - Cerebrovascular accident [Fatal]
